FAERS Safety Report 8949410 (Version 1)
Quarter: 2012Q4

REPORT INFORMATION
  Report Type: 
  Country: FR (occurrence: FR)
  Receive Date: 20121206
  Receipt Date: 20121206
  Transmission Date: 20130627
  Serious: Yes (Hospitalization, Other)
  Sender: FDA-Public Use
  Company Number: FR-ELI_LILLY_AND_COMPANY-FR201211007538

PATIENT
  Age: 38 Year
  Sex: Male

DRUGS (7)
  1. ZYPREXA [Suspect]
     Indication: DYSTHYMIC DISORDER
     Dosage: 10 mg, bid
     Dates: start: 2011, end: 201109
  2. ZYPREXA [Interacting]
     Dosage: 10 mg, bid
     Dates: start: 2012, end: 20120925
  3. LEVOTHYROX [Concomitant]
     Indication: HYPOTHYROIDISM
     Dosage: 50 ug, qd
     Dates: start: 20110924
  4. VALIUM [Concomitant]
     Indication: ANXIETY
     Dosage: 10 mg, qid
  5. EFFEXOR [Concomitant]
     Indication: DEPRESSION
     Dosage: 75 mg, bid
  6. DEPAKINE CHRONO [Concomitant]
     Indication: DYSTHYMIC DISORDER
     Dosage: 500 mg, tid
     Dates: end: 201209
  7. DEPAMIDE [Concomitant]
     Indication: DYSTHYMIC DISORDER
     Dosage: 300 mg, tid
     Dates: start: 20120927

REACTIONS (5)
  - Hyperglycaemia [Unknown]
  - Altered state of consciousness [Unknown]
  - Dehydration [Unknown]
  - Drug interaction [Unknown]
  - Weight decreased [Unknown]
